FAERS Safety Report 5945756-1 (Version None)
Quarter: 2008Q4

REPORT INFORMATION
  Report Type: 
  Country: None (occurrence: None)
  Receive Date: 20081106
  Receipt Date: 20081029
  Transmission Date: 20090506
  Serious: No
  Sender: FDA-Public Use
  Company Number: LIT-08-0019-W

PATIENT
  Age: 80 Year
  Sex: Female

DRUGS (9)
  1. CITALOPRAM HYDROBROMIDE [Suspect]
     Indication: ANXIETY
     Dosage: 10MG/20MG
  2. PROPAFENONE HCL [Suspect]
     Indication: ATRIAL FIBRILLATION
     Dosage: 900 MG/DAY
  3. . [Concomitant]
  4. DIGOXIN [Concomitant]
  5. ISOSORBIDE [Concomitant]
  6. DINITRATE [Concomitant]
  7. SPIRONOLACTONE/HYDROCHLOROTHIAZIDE [Concomitant]
  8. SIMVASTIN [Concomitant]
  9. ACETYLSALICYLIC ACID SRT [Concomitant]

REACTIONS (3)
  - CHEST DISCOMFORT [None]
  - DIZZINESS [None]
  - DRUG INTERACTION [None]
